FAERS Safety Report 17582409 (Version 3)
Quarter: 2022Q3

REPORT INFORMATION
  Report Type: Spontaneous
  Country: SE (occurrence: SE)
  Receive Date: 20200325
  Receipt Date: 20220713
  Transmission Date: 20221027
  Serious: Yes (Hospitalization, Other)
  Sender: FDA-Public Use
  Company Number: SE-GSKCCFEMEA-CASE-00904800_AE-26659

PATIENT

DRUGS (1)
  1. NUCALA [Suspect]
     Active Substance: MEPOLIZUMAB
     Indication: Asthma
     Dosage: UNK
     Dates: start: 20190215

REACTIONS (6)
  - Malignant melanoma [Unknown]
  - Meningioma [Unknown]
  - Eosinophil count increased [Unknown]
  - Therapy cessation [Unknown]
  - Chemotherapy [Unknown]
  - Malaise [Unknown]

NARRATIVE: CASE EVENT DATE: 20190702
